FAERS Safety Report 8160348-4 (Version None)
Quarter: 2012Q1

REPORT INFORMATION
  Report Type: 
  Country: None (occurrence: None)
  Receive Date: 20120223
  Receipt Date: 20120213
  Transmission Date: 20120608
  Serious: Yes (Hospitalization, Other)
  Sender: FDA-Public Use
  Company Number: US-ABBOTT-12P-163-0896319-00

PATIENT
  Age: 65 Year
  Sex: Female

DRUGS (10)
  1. SULFADIAZINE [Concomitant]
     Indication: CROHN'S DISEASE
  2. VITAMIN D [Concomitant]
     Indication: PRODUCT USED FOR UNKNOWN INDICATION
     Dosage: 1000-2000 UNITS DAILY
  3. DICYCLOMINE [Concomitant]
     Indication: CROHN'S DISEASE
  4. FLUOXETINE [Concomitant]
     Indication: PRODUCT USED FOR UNKNOWN INDICATION
  5. OMEPRAZOLE [Concomitant]
     Indication: PRODUCT USED FOR UNKNOWN INDICATION
  6. MULTI-VITAMIN [Concomitant]
     Indication: PRODUCT USED FOR UNKNOWN INDICATION
  7. HUMIRA [Suspect]
     Indication: CROHN'S DISEASE
     Dates: start: 20111104
  8. SULFASALAZINE [Concomitant]
     Indication: PRODUCT USED FOR UNKNOWN INDICATION
     Dosage: 4 PILLS IN AM AND 4 PILLS IN PM
  9. PREDNISONE [Concomitant]
     Indication: CROHN'S DISEASE
  10. TEMAZEPAM [Concomitant]
     Indication: PRODUCT USED FOR UNKNOWN INDICATION

REACTIONS (5)
  - ERYTHEMA [None]
  - RASH MACULAR [None]
  - HAEMATOMA [None]
  - INJECTION SITE PAIN [None]
  - ANAEMIA [None]
